FAERS Safety Report 23762277 (Version 1)
Quarter: 2024Q2

REPORT INFORMATION
  Report Type: Spontaneous
  Country: US (occurrence: None)
  Receive Date: 20240418
  Receipt Date: 20240418
  Transmission Date: 20240716
  Serious: Yes (Hospitalization)
  Sender: FDA-Public Use
  Company Number: None

PATIENT
  Age: 66 Year
  Sex: Male

DRUGS (1)
  1. STELARA [Suspect]
     Active Substance: USTEKINUMAB
     Indication: Psoriasis
     Dosage: 90 MG/ML EVERY 12 MONTHS SUBCUTANEOUS?
     Route: 058
     Dates: start: 20240313

REACTIONS (3)
  - Cellulitis [None]
  - Post procedural complication [None]
  - Skin exfoliation [None]

NARRATIVE: CASE EVENT DATE: 20240417
